FAERS Safety Report 6788254-8 (Version None)
Quarter: 2010Q2

REPORT INFORMATION
  Report Type: 
  Country: None (occurrence: None)
  Receive Date: 20100623
  Receipt Date: 20080226
  Transmission Date: 20101027
  Serious: No
  Sender: FDA-Public Use
  Company Number: US-PFIZER INC-2008018813

PATIENT
  Sex: Female

DRUGS (2)
  1. DIFLUCAN [Suspect]
     Indication: ENCEPHALITIS
     Route: 042
     Dates: start: 20060501, end: 20060701
  2. DIFLUCAN [Suspect]
     Indication: MENINGITIS
     Route: 042
     Dates: start: 20070101, end: 20080221

REACTIONS (2)
  - CATHETER SITE INFECTION [None]
  - RETCHING [None]
